FAERS Safety Report 13285108 (Version 1)
Quarter: 2017Q1

REPORT INFORMATION
  Report Type: Spontaneous
  Country: US (occurrence: US)
  Receive Date: 20170301
  Receipt Date: 20170301
  Transmission Date: 20170428
  Serious: Yes (Death)
  Sender: FDA-Public Use
  Company Number: None

PATIENT
  Age: 58 Year
  Sex: Female
  Weight: 32.4 kg

DRUGS (4)
  1. RELAFEN [Suspect]
     Active Substance: NABUMETONE
     Indication: MYALGIA
     Dates: start: 20160426, end: 20160824
  2. GABEPENTIN [Concomitant]
  3. ESTRADIOL. [Concomitant]
     Active Substance: ESTRADIOL
  4. ONDESTREN [Concomitant]

REACTIONS (3)
  - Cardiac failure [None]
  - Drowning [None]
  - Seizure [None]

NARRATIVE: CASE EVENT DATE: 20160510
